FAERS Safety Report 15423430 (Version 26)
Quarter: 2024Q3

REPORT INFORMATION
  Report Type: Report from Study
  Country: CA (occurrence: CA)
  Receive Date: 20180925
  Receipt Date: 20240705
  Transmission Date: 20241016
  Serious: Yes (Other)
  Sender: ROCHE
  Company Number: CA-002147023-PHHY2018CA021146

PATIENT
  Age: 64 Year
  Sex: Female
  Weight: 60.0 kg

DRUGS (26)
  1. XOLAIR [Suspect]
     Active Substance: OMALIZUMAB
     Indication: Asthma
     Route: 058
     Dates: start: 20180606
  2. XOLAIR [Suspect]
     Active Substance: OMALIZUMAB
     Route: 058
     Dates: start: 20180620
  3. XOLAIR [Suspect]
     Active Substance: OMALIZUMAB
     Route: 058
  4. XOLAIR [Suspect]
     Active Substance: OMALIZUMAB
     Route: 058
     Dates: start: 20180703
  5. XOLAIR [Suspect]
     Active Substance: OMALIZUMAB
     Route: 058
  6. XOLAIR [Suspect]
     Active Substance: OMALIZUMAB
     Route: 058
     Dates: start: 20180829
  7. XOLAIR [Suspect]
     Active Substance: OMALIZUMAB
     Route: 058
  8. XOLAIR [Suspect]
     Active Substance: OMALIZUMAB
     Route: 058
     Dates: start: 20180912
  9. XOLAIR [Suspect]
     Active Substance: OMALIZUMAB
     Route: 058
     Dates: start: 20181009
  10. XOLAIR [Suspect]
     Active Substance: OMALIZUMAB
     Route: 058
     Dates: start: 20190102
  11. XOLAIR [Suspect]
     Active Substance: OMALIZUMAB
     Route: 058
  12. XOLAIR [Suspect]
     Active Substance: OMALIZUMAB
     Route: 058
     Dates: start: 20190130
  13. XOLAIR [Suspect]
     Active Substance: OMALIZUMAB
     Route: 058
     Dates: start: 20190422
  14. XOLAIR [Suspect]
     Active Substance: OMALIZUMAB
     Route: 058
     Dates: start: 2019
  15. XOLAIR [Suspect]
     Active Substance: OMALIZUMAB
     Route: 058
     Dates: start: 20190722
  16. XOLAIR [Suspect]
     Active Substance: OMALIZUMAB
     Route: 058
     Dates: start: 20190903
  17. XOLAIR [Suspect]
     Active Substance: OMALIZUMAB
     Route: 058
     Dates: start: 20190917
  18. XOLAIR [Suspect]
     Active Substance: OMALIZUMAB
     Route: 058
     Dates: start: 20191125
  19. XOLAIR [Suspect]
     Active Substance: OMALIZUMAB
     Route: 058
     Dates: start: 20190130
  20. XOLAIR [Suspect]
     Active Substance: OMALIZUMAB
     Route: 058
     Dates: start: 20180606
  21. SPIRIVA [Concomitant]
     Active Substance: TIOTROPIUM BROMIDE MONOHYDRATE
     Indication: Asthma
     Dosage: 1 DF, QD
     Route: 055
     Dates: start: 2017
  22. PATANOL [Concomitant]
     Active Substance: OLOPATADINE HYDROCHLORIDE
     Indication: Eye disorder
     Route: 047
     Dates: start: 2008
  23. OMNARIS [Concomitant]
     Active Substance: CICLESONIDE
     Indication: Hypersensitivity
     Dosage: 2 DF, PRN
     Route: 045
     Dates: start: 2008
  24. OMNARIS [Concomitant]
     Active Substance: CICLESONIDE
     Indication: Sinus disorder
  25. DOXYCYCLINE [Concomitant]
     Active Substance: DOXYCYCLINE\DOXYCYCLINE HYCLATE
     Indication: Product used for unknown indication
     Dosage: 100MG FOR 5 DAYS
  26. ATARAX [Concomitant]
     Active Substance: HYDROXYZINE HYDROCHLORIDE
     Indication: Hypersensitivity
     Dosage: 1 DF, PRN
     Route: 048
     Dates: start: 2003

REACTIONS (38)
  - Pneumonia [Unknown]
  - Cystitis haemorrhagic [Not Recovered/Not Resolved]
  - Foot fracture [Unknown]
  - Hot flush [Recovered/Resolved]
  - Blood pressure increased [Not Recovered/Not Resolved]
  - Abdominal pain [Recovered/Resolved]
  - Gait disturbance [Unknown]
  - Respiratory disorder [Unknown]
  - Lethargy [Unknown]
  - Migraine [Unknown]
  - Sinus congestion [Unknown]
  - Sinusitis [Unknown]
  - Oropharyngeal pain [Recovered/Resolved]
  - Eye pruritus [Unknown]
  - Seasonal allergy [Unknown]
  - Pyrexia [Recovered/Resolved]
  - Fall [Unknown]
  - Illness [Recovered/Resolved]
  - Back pain [Unknown]
  - Blood urine present [Recovered/Resolved]
  - Sputum discoloured [Recovered/Resolved]
  - Conjunctivitis allergic [Unknown]
  - Allergy to plants [Unknown]
  - Weight decreased [Unknown]
  - Aphonia [Unknown]
  - Viral infection [Unknown]
  - Injection site haemorrhage [Unknown]
  - Asthenia [Recovered/Resolved]
  - Asthma [Unknown]
  - Fatigue [Unknown]
  - Diarrhoea [Recovered/Resolved]
  - Abdominal pain upper [Recovering/Resolving]
  - Cough [Recovered/Resolved]
  - Arthralgia [Not Recovered/Not Resolved]
  - Wrong technique in product usage process [Unknown]
  - Urinary tract infection [Unknown]
  - Contusion [Unknown]
  - Gastrointestinal disorder [Unknown]

NARRATIVE: CASE EVENT DATE: 20180606
